FAERS Safety Report 6761949-8 (Version None)
Quarter: 2010Q2

REPORT INFORMATION
  Report Type: 
  Country: None (occurrence: None)
  Receive Date: 20100609
  Receipt Date: 20100603
  Transmission Date: 20101027
  Serious: Yes (Other)
  Sender: FDA-Public Use
  Company Number: US-JNJFOC-20100602256

PATIENT
  Sex: Female
  Weight: 90.72 kg

DRUGS (3)
  1. DURAGESIC-100 [Suspect]
     Indication: ABDOMINAL PAIN
     Route: 062
  2. ADVAIR DISKUS 100/50 [Concomitant]
     Indication: ASTHMA
     Route: 055
  3. VALIUM [Concomitant]
     Indication: ANXIETY
     Route: 048

REACTIONS (4)
  - NAUSEA [None]
  - SEPSIS [None]
  - VOMITING [None]
  - WRONG TECHNIQUE IN DRUG USAGE PROCESS [None]
